FAERS Safety Report 7615773-4 (Version None)
Quarter: 2011Q3

REPORT INFORMATION
  Report Type: 
  Country: None (occurrence: None)
  Receive Date: 20110715
  Receipt Date: 20110715
  Transmission Date: 20111222
  Serious: Yes (Hospitalization)
  Sender: FDA-Public Use
  Company Number: None

PATIENT
  Age: 53 Year
  Sex: Male
  Weight: 92.5 kg

DRUGS (1)
  1. ETODOLAC [Suspect]
     Dosage: 400 MG BID PO
     Route: 048
     Dates: start: 20110627, end: 20110713

REACTIONS (4)
  - RASH [None]
  - ERYTHEMA MULTIFORME [None]
  - URTICARIA [None]
  - PRURITUS [None]
